FAERS Safety Report 11170059 (Version 2)
Quarter: 2015Q2

REPORT INFORMATION
  Report Type: Spontaneous
  Country: TR (occurrence: TR)
  Receive Date: 20150608
  Receipt Date: 20150617
  Transmission Date: 20150821
  Serious: Yes (Other)
  Sender: FDA-Public Use
  Company Number: TR-ROCHE-1589315

PATIENT
  Age: 50 Year
  Sex: Female

DRUGS (2)
  1. SEMPREX [Concomitant]
  2. XOLAIR [Suspect]
     Active Substance: OMALIZUMAB
     Indication: PRODUCT USED FOR UNKNOWN INDICATION
     Route: 065
     Dates: start: 20141104, end: 201503

REACTIONS (12)
  - Mental disorder [Unknown]
  - Skin disorder [Unknown]
  - Injection site pain [Recovering/Resolving]
  - Hypersensitivity [Unknown]
  - Drug hypersensitivity [Unknown]
  - Peripheral swelling [Unknown]
  - Bronchitis [Unknown]
  - Panic reaction [Unknown]
  - Pain in extremity [Unknown]
  - Dizziness [Unknown]
  - Disease progression [Unknown]
  - Hepatic enzyme increased [Unknown]

NARRATIVE: CASE EVENT DATE: 20150403
